FAERS Safety Report 9580832 (Version 2)
Quarter: 2013Q4

REPORT INFORMATION
  Report Type: Spontaneous
  Country: US (occurrence: US)
  Receive Date: 20131002
  Receipt Date: 20131114
  Transmission Date: 20140711
  Serious: Yes (Death, Hospitalization, Other)
  Sender: FDA-Public Use
  Company Number: US-VERTEX PHARMACEUTICALS INC-2013-009951

PATIENT
  Sex: 0

DRUGS (4)
  1. VX-950 (TELAPREVIR) [Suspect]
     Indication: HEPATITIS C
  2. PEGASYS [Suspect]
     Indication: HEPATITIS C
  3. RIBAVIRIN [Suspect]
     Indication: HEPATITIS C
  4. TACROLIMUS [Concomitant]

REACTIONS (6)
  - Hospitalisation [Unknown]
  - Renal failure [Unknown]
  - Anaemia [Unknown]
  - Death [Fatal]
  - Off label use [Unknown]
  - Drug ineffective [Unknown]
